FAERS Safety Report 5874089-7 (Version None)
Quarter: 2008Q3

REPORT INFORMATION
  Report Type: 
  Country: None (occurrence: None)
  Receive Date: 20080829
  Receipt Date: 20060810
  Transmission Date: 20090109
  Serious: Yes (Life-Threatening, Hospitalization, Disabling)
  Sender: FDA-Public Use
  Company Number: 2008S1011046

PATIENT
  Age: 72 Year
  Sex: Female

DRUGS (10)
  1. CLARITHROMYCIN [Suspect]
     Indication: DRUG USE FOR UNKNOWN INDICATION
     Dosage: 500 MG; ORAL
     Route: 048
     Dates: start: 20060706
  2. DIGOXIN [Suspect]
     Indication: DRUG USE FOR UNKNOWN INDICATION
     Dosage: 500 UG; ORAL
     Route: 048
     Dates: start: 20060704, end: 20060710
  3. ALLOPURINOL (ALLOPURINOL) (CON.) [Concomitant]
  4. AMOXICILLIN (AMOXICILLIN) (CON.) [Concomitant]
  5. ASPIRIN (ACETYLSALICYLIC ACID) (CON.) [Concomitant]
  6. ATENOLOL (ATENOLOL) (CON.) [Concomitant]
  7. FOSINOPRIL (FOSINOPRIL) (CON.) [Concomitant]
  8. GLICLAZIDE (GLICLAZIDE) (CON.) [Concomitant]
  9. OMERAZOLE (OMEPRAZOLE) (CON.) [Concomitant]
  10. RAMIPRIL (RAMIPRIL) (CON.) [Concomitant]

REACTIONS (4)
  - CARDIAC ARREST [None]
  - DRUG DEPENDENCE [None]
  - NODAL ARRHYTHMIA [None]
  - SUPRAVENTRICULAR TACHYCARDIA [None]
